FAERS Safety Report 16834054 (Version 6)
Quarter: 2022Q1

REPORT INFORMATION
  Report Type: Spontaneous
  Country: US (occurrence: US)
  Receive Date: 20190920
  Receipt Date: 20220314
  Transmission Date: 20220423
  Serious: Yes (Other)
  Sender: FDA-Public Use
  Company Number: US-GILEAD-2019-0428527

PATIENT
  Age: 69 Year
  Sex: Male
  Weight: 86.183 kg

DRUGS (8)
  1. TRUVADA [Suspect]
     Active Substance: EMTRICITABINE\TENOFOVIR DISOPROXIL FUMARATE
     Indication: HIV infection
     Dosage: UNK
     Route: 048
     Dates: start: 20040626, end: 20190710
  2. TRUVADA [Suspect]
     Active Substance: EMTRICITABINE\TENOFOVIR DISOPROXIL FUMARATE
     Indication: Acquired immunodeficiency syndrome
  3. AMOXICILLIN [Concomitant]
     Active Substance: AMOXICILLIN
  4. KALETRA [Concomitant]
     Active Substance: LOPINAVIR\RITONAVIR
  5. SUSTIVA [Concomitant]
     Active Substance: EFAVIRENZ
  6. VIRACEPT [Concomitant]
     Active Substance: NELFINAVIR MESYLATE
  7. AZT [Concomitant]
     Active Substance: ZIDOVUDINE
     Indication: HIV infection
  8. ZERIT [Concomitant]
     Active Substance: STAVUDINE
     Indication: HIV infection

REACTIONS (25)
  - Multiple fractures [Unknown]
  - Osteonecrosis [Not Recovered/Not Resolved]
  - Fibula fracture [Not Recovered/Not Resolved]
  - Hip arthroplasty [Not Recovered/Not Resolved]
  - Nephrosclerosis [Not Recovered/Not Resolved]
  - Renal tubular injury [Not Recovered/Not Resolved]
  - Chronic kidney disease [Not Recovered/Not Resolved]
  - Renal failure [Unknown]
  - Spinal osteoarthritis [Not Recovered/Not Resolved]
  - Emotional distress [Unknown]
  - Anhedonia [Not Recovered/Not Resolved]
  - Economic problem [Not Recovered/Not Resolved]
  - Anxiety [Not Recovered/Not Resolved]
  - Bone density decreased [Unknown]
  - Bone loss [Unknown]
  - Pain [Not Recovered/Not Resolved]
  - Blood creatinine increased [Not Recovered/Not Resolved]
  - Osteoarthritis [Unknown]
  - Intervertebral disc protrusion [Unknown]
  - Facet joint syndrome [Unknown]
  - Radiculopathy [Unknown]
  - Depression [Not Recovered/Not Resolved]
  - Decreased appetite [Recovered/Resolved]
  - Mobility decreased [Not Recovered/Not Resolved]
  - Proteinuria [Unknown]

NARRATIVE: CASE EVENT DATE: 20080403
